FAERS Safety Report 7538778-0 (Version None)
Quarter: 2011Q2

REPORT INFORMATION
  Report Type: 
  Country: None (occurrence: None)
  Receive Date: 20110610
  Receipt Date: 20110106
  Transmission Date: 20111010
  Serious: Yes (Other)
  Sender: FDA-Public Use
  Company Number: US-BAYER-201040145NA

PATIENT
  Age: 20 Year
  Sex: Female
  Weight: 70.295 kg

DRUGS (10)
  1. YAZ [Suspect]
     Indication: PREMENSTRUAL SYNDROME
     Dosage: UNK UNK, QD
     Route: 048
     Dates: start: 20070101, end: 20090604
  2. YASMIN [Suspect]
     Indication: PREMENSTRUAL SYNDROME
     Dosage: UNK UNK, QD
     Route: 048
     Dates: start: 20070101, end: 20090604
  3. NADOLOL [Concomitant]
     Indication: UNEVALUABLE EVENT
     Dosage: 20 MG, BID
     Route: 048
  4. HYOMAX [Concomitant]
  5. DOXYCLINE [Concomitant]
  6. WELCHOL [Concomitant]
  7. ALEVE (CAPLET) [Concomitant]
     Indication: PAIN
     Dosage: UNK UNK, PRN
     Route: 048
  8. BISOPROLOL FUMARATE [Concomitant]
  9. KLONOPIN [Concomitant]
     Indication: ANXIETY
     Dosage: 0.5 MG, HS
     Route: 048
  10. TRAMADOL HCL [Concomitant]

REACTIONS (8)
  - GALLBLADDER INJURY [None]
  - DYSPEPSIA [None]
  - ABDOMINAL PAIN [None]
  - ABDOMINAL PAIN UPPER [None]
  - CHOLELITHIASIS [None]
  - GALLBLADDER CHOLESTEROLOSIS [None]
  - DIARRHOEA [None]
  - CHOLECYSTITIS CHRONIC [None]
